FAERS Safety Report 6487694-4 (Version None)
Quarter: 2009Q4

REPORT INFORMATION
  Report Type: 
  Country: None (occurrence: None)
  Receive Date: 20091209
  Receipt Date: 20091209
  Transmission Date: 20100525
  Serious: Yes (Hospitalization)
  Sender: FDA-Public Use
  Company Number: None

PATIENT
  Age: 82 Year
  Sex: Female
  Weight: 71 kg

DRUGS (18)
  1. COUMADIN [Suspect]
     Indication: ATRIAL FIBRILLATION
     Dosage: 4 MG SUN M T TH F PO CHRONIC
     Route: 048
  2. COUMADIN [Suspect]
     Indication: ATRIAL FIBRILLATION
     Dosage: 2MG WED AND SAT PO CHRONIC
     Route: 048
  3. LOMOTIL [Concomitant]
  4. IMODIUM [Concomitant]
  5. COREG [Concomitant]
  6. CALTRATE [Concomitant]
  7. VIT B [Concomitant]
  8. XANAX [Concomitant]
  9. M.V.I. [Concomitant]
  10. ALLOPURINOL [Concomitant]
  11. SIMETHICONE [Concomitant]
  12. SERTRALINE HCL [Concomitant]
  13. NEXIUM [Concomitant]
  14. ULTRACET [Concomitant]
  15. TYLENOL (CAPLET) [Concomitant]
  16. COREG [Concomitant]
  17. CENTRUM SILVER [Concomitant]
  18. FLAGYL [Concomitant]

REACTIONS (7)
  - ACTIVATED PARTIAL THROMBOPLASTIN TIME SHORTENED [None]
  - CEREBELLAR HAEMORRHAGE [None]
  - CEREBRAL INFARCTION [None]
  - DYSPHAGIA [None]
  - HAEMATOCRIT DECREASED [None]
  - HAEMOGLOBIN DECREASED [None]
  - INTERNATIONAL NORMALISED RATIO DECREASED [None]
